FAERS Safety Report 13462079 (Version 1)
Quarter: 2017Q2

REPORT INFORMATION
  Report Type: Report from Study
  Country: US (occurrence: US)
  Receive Date: 20170420
  Receipt Date: 20170420
  Transmission Date: 20170830
  Serious: Yes (Other)
  Sender: FDA-Public Use
  Company Number: US-ROCHE-1616839

PATIENT
  Age: 49 Year
  Sex: Female
  Weight: 92.5 kg

DRUGS (31)
  1. OCRELIZUMAB [Suspect]
     Active Substance: OCRELIZUMAB
     Dosage: OLE - WEEK 48
     Route: 042
     Dates: start: 20150721, end: 20150721
  2. EPINEPHRINE/LIDOCAINE [Concomitant]
     Active Substance: EPINEPHRINE\LIDOCAINE
     Route: 065
     Dates: start: 20130305, end: 20130305
  3. ALLEGRA [Concomitant]
     Active Substance: FEXOFENADINE HYDROCHLORIDE
     Route: 065
     Dates: start: 201205
  4. MUCINEX DM [Concomitant]
     Active Substance: DEXTROMETHORPHAN HYDROBROMIDE\GUAIFENESIN
     Route: 065
     Dates: start: 20141001, end: 20141005
  5. PLACEBO [Suspect]
     Active Substance: UNSPECIFIED INGREDIENT
     Indication: MULTIPLE SCLEROSIS RELAPSE
     Dosage: RECEIVED AS PER PROTOCOL BASELINE WEEK 1 (12/SEP/2012), WEEK 2 (27/SEP/2012), WEEK 24 (26/FEB/2013),
     Route: 042
     Dates: start: 20120912, end: 20140203
  6. ALEVE [Concomitant]
     Active Substance: NAPROXEN SODIUM
     Route: 065
     Dates: start: 20140127, end: 20140201
  7. TYLENOL [Concomitant]
     Active Substance: ACETAMINOPHEN
     Indication: PREMEDICATION
     Dosage: AS PRE MEDICATION BASELINE WEEK 1 (12/SEP/2012), WEEK 2 (27/SEP/2012), WEEK 24 (26/FEB/2013), WEEK 4
     Route: 065
     Dates: start: 20120912
  8. NORMAL SALINE [Concomitant]
     Active Substance: SODIUM CHLORIDE
     Route: 065
     Dates: start: 20130223, end: 20130223
  9. ALLEGRA [Concomitant]
     Active Substance: FEXOFENADINE HYDROCHLORIDE
     Route: 065
     Dates: start: 20131129, end: 201401
  10. NAPRELAN [Concomitant]
     Active Substance: NAPROXEN SODIUM
     Route: 065
     Dates: start: 20150126, end: 20150126
  11. TETANUS TOXOID [Concomitant]
     Active Substance: TETANUS TOXOIDS
     Route: 065
     Dates: start: 20140829, end: 20140829
  12. OCRELIZUMAB [Suspect]
     Active Substance: OCRELIZUMAB
     Dosage: OLE-WEEK 24
     Route: 042
     Dates: start: 20150126, end: 20150126
  13. FLUVIRIN (UNITED STATES) [Concomitant]
     Route: 065
     Dates: start: 20131023, end: 20131023
  14. INTERFERON BETA-1A [Suspect]
     Active Substance: INTERFERON BETA-1A
     Indication: MULTIPLE SCLEROSIS RELAPSE
     Dosage: FOR WEEK 1 AND 2
     Route: 058
     Dates: start: 20120912
  15. ARTICAINE/EPINEPHRINE [Concomitant]
     Active Substance: ARTICAINE\EPINEPHRINE
     Route: 065
     Dates: start: 20130628, end: 20130628
  16. CIPRO [Concomitant]
     Active Substance: CIPROFLOXACIN HYDROCHLORIDE
     Route: 065
     Dates: start: 20150124, end: 20150126
  17. OCRELIZUMAB [Suspect]
     Active Substance: OCRELIZUMAB
     Dosage: OLE - WEEK 2
     Route: 042
     Dates: start: 20140828, end: 20140828
  18. BIAXIN [Concomitant]
     Active Substance: CLARITHROMYCIN
     Route: 065
     Dates: start: 20130103
  19. AMPYRA [Concomitant]
     Active Substance: DALFAMPRIDINE
     Route: 065
     Dates: start: 20140521
  20. INFLUENZA VACCINE [Concomitant]
     Active Substance: INFLUENZA VIRUS VACCINE
     Route: 065
     Dates: start: 20141105, end: 20141105
  21. IBUPROFEN. [Concomitant]
     Active Substance: IBUPROFEN
     Route: 065
     Dates: start: 1983
  22. ALKA SELTZER PLUS DAY [Concomitant]
     Route: 065
     Dates: start: 20140223, end: 20140224
  23. INTERFERON BETA-1A [Suspect]
     Active Substance: INTERFERON BETA-1A
     Dosage: FOR WEEKS 3 AND 4: 22 MICROGRAM INJECTION 3 TIMES PER WEEK;?FOR THE 5TH WEEK: 44 MICROGRAM INJECTION
     Route: 058
     Dates: end: 20140812
  24. OCRELIZUMAB [Suspect]
     Active Substance: OCRELIZUMAB
     Indication: MULTIPLE SCLEROSIS
     Dosage: RECEIVED AS PER PROTOCOL OLE-WEEK 0 (14/AUG/2014), OLE-WEEK 2 (28/AUG/2014), OLE-WEEK 24 (26/JAN/201
     Route: 042
     Dates: start: 20140814, end: 20140814
  25. METHYLPREDNISOLONE. [Concomitant]
     Active Substance: METHYLPREDNISOLONE
     Indication: PREMEDICATION
     Dosage: AS PRE MEDICATION BASELINE WEEK 1 (12/SEP/2012), WEEK 2 (27/SEP/2012), WEEK 24 (26/FEB/2013), WEEK 4
     Route: 065
     Dates: start: 20120912
  26. FLUTICASONE. [Concomitant]
     Active Substance: FLUTICASONE
     Route: 065
     Dates: start: 201205, end: 20140501
  27. FLULAVAL [Concomitant]
     Route: 065
     Dates: start: 20121107, end: 20121107
  28. BENADRYL [Concomitant]
     Active Substance: DIPHENHYDRAMINE HYDROCHLORIDE
     Indication: PREMEDICATION
     Dosage: AS PRE MEDICATION BASELINE WEEK 1 (12/SEP/2012), WEEK 2 (27/SEP/2012), WEEK 24 (26/FEB/2013), WEEK 4
     Route: 065
     Dates: start: 20120912
  29. NAPRELAN [Concomitant]
     Active Substance: NAPROXEN SODIUM
     Route: 065
     Dates: start: 20140203, end: 20140203
  30. NAPRELAN [Concomitant]
     Active Substance: NAPROXEN SODIUM
     Route: 065
     Dates: start: 20140814, end: 20140814
  31. NAPRELAN [Concomitant]
     Active Substance: NAPROXEN SODIUM
     Route: 065
     Dates: start: 20140828, end: 20140828

REACTIONS (1)
  - Malignant melanoma [Recovered/Resolved]

NARRATIVE: CASE EVENT DATE: 20150723
